FAERS Safety Report 12864368 (Version 1)
Quarter: 2016Q4

REPORT INFORMATION
  Report Type: Spontaneous
  Country: US (occurrence: US)
  Receive Date: 20161020
  Receipt Date: 20161020
  Transmission Date: 20170207
  Serious: No
  Sender: FDA-Public Use
  Company Number: US-TEVA-667569USA

PATIENT
  Sex: Female
  Weight: 106.24 kg

DRUGS (1)
  1. PHENTERMINE. [Suspect]
     Active Substance: PHENTERMINE
     Indication: WEIGHT DECREASED
     Route: 065
     Dates: start: 20160428

REACTIONS (1)
  - Drug ineffective [Unknown]
